FAERS Safety Report 6965368-0 (Version None)
Quarter: 2010Q3

REPORT INFORMATION
  Report Type: 
  Country: None (occurrence: None)
  Receive Date: 20100903
  Receipt Date: 20100825
  Transmission Date: 20110219
  Serious: Yes (Hospitalization)
  Sender: FDA-Public Use
  Company Number: A0744000A

PATIENT
  Age: 53 Year
  Sex: Female
  Weight: 123.6 kg

DRUGS (10)
  1. AVANDIA [Suspect]
     Indication: DIABETES MELLITUS
     Dosage: 4MG PER DAY
     Route: 048
     Dates: start: 20040626
  2. GLUCOPHAGE [Concomitant]
  3. VIOXX [Concomitant]
  4. METFORMIN [Concomitant]
  5. PREVACID [Concomitant]
  6. LIPITOR [Concomitant]
  7. PAROXETINE HCL [Concomitant]
  8. FOSINOPRIL SODIUM [Concomitant]
  9. PAMELOR [Concomitant]
  10. NEURONTIN [Concomitant]

REACTIONS (2)
  - CEREBROVASCULAR ACCIDENT [None]
  - HEMIPLEGIA [None]
